FAERS Safety Report 14598758 (Version 1)
Quarter: 2018Q1

REPORT INFORMATION
  Report Type: Spontaneous
  Country: US (occurrence: US)
  Receive Date: 20180305
  Receipt Date: 20180305
  Transmission Date: 20180509
  Serious: No
  Sender: FDA-Public Use
  Company Number: US-009507513-1802USA013556

PATIENT
  Sex: Male
  Weight: 37.03 kg

DRUGS (4)
  1. COREG [Suspect]
     Active Substance: CARVEDILOL
  2. COZAAR [Suspect]
     Active Substance: LOSARTAN POTASSIUM
     Route: 048
  3. PRAVASTATIN. [Suspect]
     Active Substance: PRAVASTATIN
  4. AMIODARONE [Suspect]
     Active Substance: AMIODARONE
     Dosage: 20 TABLETS
     Route: 048

REACTIONS (1)
  - Hypertension [Recovered/Resolved]
